FAERS Safety Report 21927841 (Version 1)
Quarter: 2023Q1

REPORT INFORMATION
  Report Type: Spontaneous
  Country: US (occurrence: None)
  Receive Date: 20230130
  Receipt Date: 20230130
  Transmission Date: 20230418
  Serious: Yes (Other)
  Sender: FDA-Public Use
  Company Number: None

PATIENT
  Age: 54 Year
  Sex: Female
  Weight: 72.7 kg

DRUGS (1)
  1. PACLITAXEL [Suspect]
     Active Substance: PACLITAXEL
     Dates: start: 20221230, end: 20221230

REACTIONS (3)
  - Cardio-respiratory arrest [None]
  - Flushing [None]
  - Throat tightness [None]

NARRATIVE: CASE EVENT DATE: 20221230
